FAERS Safety Report 21473669 (Version 1)
Quarter: 2022Q4

REPORT INFORMATION
  Report Type: Spontaneous
  Country: GB (occurrence: GB)
  Receive Date: 20221018
  Receipt Date: 20221018
  Transmission Date: 20230112
  Serious: Yes (Hospitalization, Disabling, Other)
  Sender: FDA-Public Use
  Company Number: GB-MHRA-MED-202210141449188970-YZPTW

PATIENT
  Age: 70 Year
  Sex: Female

DRUGS (6)
  1. ZOLEDRONIC ACID [Suspect]
     Active Substance: ZOLEDRONIC ACID
     Indication: Neoplasm malignant
     Dosage: UNKNOWN
     Dates: start: 20221007, end: 20221014
  2. ADCAL [CALCIUM CARBONATE;COLECALCIFEROL] [Concomitant]
  3. AMLODIPINE [Concomitant]
     Active Substance: AMLODIPINE BESYLATE
     Indication: Hypertension
  4. LETROZOLE [Concomitant]
     Active Substance: LETROZOLE
     Indication: Breast cancer
  5. OMEPRAZOLE [Concomitant]
     Active Substance: OMEPRAZOLE
  6. BIMATOPROST\TIMOLOL [Concomitant]
     Active Substance: BIMATOPROST\TIMOLOL

REACTIONS (6)
  - Headache [Recovering/Resolving]
  - Balance disorder [Unknown]
  - Hallucination, visual [Unknown]
  - Malaise [Unknown]
  - Vomiting [Unknown]
  - Off label use [Unknown]

NARRATIVE: CASE EVENT DATE: 20221001
